FAERS Safety Report 18735684 (Version 1)
Quarter: 2021Q1

REPORT INFORMATION
  Report Type: Report from Study
  Country: US (occurrence: US)
  Receive Date: 20210113
  Receipt Date: 20210113
  Transmission Date: 20210419
  Serious: Yes (Other)
  Sender: FDA-Public Use
  Company Number: US-ASTRAZENECA-2020SF52740

PATIENT
  Age: 928 Month
  Sex: Female
  Weight: 168 kg

DRUGS (1)
  1. BRILINTA [Suspect]
     Active Substance: TICAGRELOR
     Indication: CARDIAC DISORDER
     Dosage: 90 TWO TIMES A DAY
     Route: 048
     Dates: start: 201909

REACTIONS (3)
  - Injury [Unknown]
  - Mobility decreased [Unknown]
  - Skin discolouration [Unknown]

NARRATIVE: CASE EVENT DATE: 201909
